FAERS Safety Report 5928137-6 (Version None)
Quarter: 2008Q4

REPORT INFORMATION
  Report Type: 
  Country: None (occurrence: None)
  Receive Date: 20081023
  Receipt Date: 20081013
  Transmission Date: 20090506
  Serious: Yes (Hospitalization)
  Sender: FDA-Public Use
  Company Number: US-JNJFOC-20081003636

PATIENT
  Sex: Female
  Weight: 63.5 kg

DRUGS (13)
  1. FENTANYL TRANSDERMAL SYSTEM [Suspect]
     Indication: PAIN
     Route: 062
  2. FENTANYL TRANSDERMAL SYSTEM [Suspect]
     Indication: PAIN IN EXTREMITY
     Route: 062
  3. FENTANYL TRANSDERMAL SYSTEM [Suspect]
     Indication: BACK PAIN
     Route: 062
  4. DURAGESIC-100 [Suspect]
     Indication: PAIN
     Route: 062
  5. DURAGESIC-100 [Suspect]
     Indication: PAIN IN EXTREMITY
     Route: 062
  6. DURAGESIC-100 [Suspect]
     Indication: BACK PAIN
     Route: 062
  7. CYMBALTA [Concomitant]
     Indication: ANTIDEPRESSANT THERAPY
     Route: 048
  8. TRAZODONE HCL [Concomitant]
     Indication: ANTIDEPRESSANT THERAPY
     Route: 048
  9. ELAVIL [Concomitant]
     Indication: ANTIDEPRESSANT THERAPY
     Dosage: 25 MG /2 TABLETS AT BEDTIME
     Route: 048
  10. DIPYRIDAMOLE [Concomitant]
     Indication: ANTICOAGULANT THERAPY
     Route: 048
  11. METAPROLOL [Concomitant]
     Indication: HYPERTENSION
     Route: 048
  12. UNKNOWN DRUG [Concomitant]
     Indication: NEURALGIA
     Dosage: 400MG/2 CAPSULES TID
     Route: 048
  13. NEURONTIN [Concomitant]
     Indication: DISTURBANCE IN ATTENTION
     Route: 048

REACTIONS (7)
  - ANXIETY [None]
  - ARTHRALGIA [None]
  - BACK PAIN [None]
  - FALL [None]
  - HAEMOPTYSIS [None]
  - PAIN IN EXTREMITY [None]
  - PNEUMONIA [None]
